FAERS Safety Report 9298828 (Version 1)
Quarter: 2013Q2

REPORT INFORMATION
  Report Type: Spontaneous
  Country: CA (occurrence: None)
  Receive Date: 20130515
  Receipt Date: 20130515
  Transmission Date: 20140414
  Serious: Yes (Hospitalization)
  Sender: FDA-Public Use
  Company Number: 1704334

PATIENT
  Age: 74 Year
  Sex: Female
  Weight: 56.4 kg

DRUGS (17)
  1. VINCRISTINE SULFATE [Suspect]
     Indication: DIFFUSE LARGE B-CELL LYMPHOMA
     Dosage: 1.4 MG/M2 MILLIGRAM(S)/SQ. METER (UNKNOWN)
     Dates: start: 20130122
  2. CYCLOPHOSPHAMIDE [Suspect]
     Indication: DIFFUSE LARGE B-CELL LYMPHOMA
     Dosage: LAST DOSE PRIOR TO EVENT ON : 16 APR 2013, NOT REPORTED 50 UNIT NOT REPORTED (UNKNOWN)
     Dates: start: 20130122
  3. DOXORUBICIN [Suspect]
     Indication: DIFFUSE LARGE B-CELL LYMPHOMA
     Dosage: LAST DOES PRIOR TO EVENT ON 16 APR, NOT REPORTED 50 UNIT NOT REPORTED (UNKNOWN)
     Dates: start: 20130122
  4. PREDNISONE [Suspect]
     Indication: OFF LABEL USE
     Dosage: LAST DOSE PRIOR TO EVEN ON : 16 APR 2013,  100 UNIT NOT REPORTED, NOT REPORETED (UNKNOWN)
     Dates: start: 20130212
  5. RITUXIMAB [Concomitant]
  6. ALENDRONATE SODIUM W/COLECALCIFEROL [Concomitant]
  7. INVESTIGATIONAL DRUG [Concomitant]
  8. CAFFEINE W/CODEINE PHOSPHATE/PARACETAMOL) [Concomitant]
  9. CELECOXIB [Concomitant]
  10. ASPIRIN [Concomitant]
  11. FERROUS GLUCONATE [Concomitant]
  12. ESCITALOPRAM OXALATE [Concomitant]
  13. DOCOSAHEXAENOIC ACID W/EICOSAPENTAENOIC ACID/) [Concomitant]
  14. ONDANSETRON [Concomitant]
  15. PANTOPRAZOLE SODIUM [Concomitant]
  16. SENNA/00142201/) [Concomitant]
  17. DOCUSATE SODIUM [Concomitant]

REACTIONS (1)
  - Febrile neutropenia [None]
